FAERS Safety Report 5315380-2 (Version None)
Quarter: 2007Q1

REPORT INFORMATION
  Report Type: 
  Country: None (occurrence: None)
  Receive Date: 20070130
  Receipt Date: 20060822
  Transmission Date: 20070707
  Serious: Yes (Other)
  Sender: FDA-Public Use
  Company Number: 147184USA

PATIENT
  Age: 42 Year
  Sex: Female

DRUGS (2)
  1. COPAXONE [Suspect]
     Indication: MULTIPLE SCLEROSIS
     Dosage: 20 MG, SUBCUTANEOUS
     Route: 058
     Dates: start: 20050928, end: 20060401
  2. INTERFERON BETA [Suspect]
     Dates: start: 20060429

REACTIONS (4)
  - CONVULSION [None]
  - EYE MOVEMENT DISORDER [None]
  - MUSCLE SPASMS [None]
  - UNRESPONSIVE TO STIMULI [None]
